FAERS Safety Report 9526775 (Version 1)
Quarter: 2013Q3

REPORT INFORMATION
  Report Type: Spontaneous
  Country: US (occurrence: US)
  Receive Date: 20130916
  Receipt Date: 20130916
  Transmission Date: 20140515
  Serious: Yes (Hospitalization)
  Sender: FDA-Public Use
  Company Number: US-GLAXOSMITHKLINE-A1041522A

PATIENT
  Age: 56 Year
  Sex: Female

DRUGS (1)
  1. DYAZIDE [Suspect]
     Indication: PRODUCT USED FOR UNKNOWN INDICATION
     Route: 048

REACTIONS (3)
  - Pneumonia [Unknown]
  - Hyponatraemia [Unknown]
  - Nausea [Unknown]
